FAERS Safety Report 5740707-7 (Version None)
Quarter: 2008Q2

REPORT INFORMATION
  Report Type: 
  Country: None (occurrence: None)
  Receive Date: 20080516
  Receipt Date: 20080509
  Transmission Date: 20081010
  Serious: Yes (Other)
  Sender: FDA-Public Use
  Company Number: GB-PFIZER INC-2008040718

PATIENT
  Sex: Male

DRUGS (2)
  1. LIPITOR [Suspect]
     Dosage: DAILY DOSE:40MG
  2. METFORMIN HCL [Concomitant]

REACTIONS (3)
  - BLINDNESS UNILATERAL [None]
  - DIABETES MELLITUS [None]
  - MYALGIA [None]
